FAERS Safety Report 8519560-4 (Version None)
Quarter: 2012Q3

REPORT INFORMATION
  Report Type: 
  Country: None (occurrence: None)
  Receive Date: 20120718
  Receipt Date: 20120710
  Transmission Date: 20120928
  Serious: Yes (Death, Life-Threatening, Hospitalization, Other)
  Sender: FDA-Public Use
  Company Number: FR-GILEAD-2012-0051163

PATIENT
  Sex: Female

DRUGS (11)
  1. AMBISOME [Suspect]
     Indication: NEUROCRYPTOCOCCOSIS
  2. ATORVASTATIN [Concomitant]
     Indication: HYPERCHOLESTEROLAEMIA
     Dosage: 1 DF, QD
     Route: 048
  3. LASIX [Concomitant]
     Route: 048
  4. BARACLUDE [Concomitant]
     Indication: HEPATITIS B
     Dosage: 1 MG, UNK
     Route: 048
  5. PROGRAF [Concomitant]
     Indication: RENAL TRANSPLANT
     Dosage: UNK
     Route: 048
  6. MORPHINE SULFATE [Concomitant]
     Dosage: 5 MG, BID
     Route: 048
  7. VIREAD [Suspect]
     Indication: HEPATITIS B
     Dosage: 1 DF, QD
     Route: 048
     Dates: start: 20111212
  8. NEURONTIN [Concomitant]
     Dosage: 300 MG, BID
  9. CELLCEPT                           /01275104/ [Concomitant]
     Indication: RENAL TRANSPLANT
     Dosage: 250 MG, TID
     Route: 048
  10. PREDNISONE TAB [Concomitant]
     Indication: RENAL TRANSPLANT
     Dosage: 8 MG, UNK
     Route: 048
  11. DURAGESIC-100 [Concomitant]
     Dosage: 50 ?G, Q3DAYS
     Route: 058

REACTIONS (4)
  - CLOSTRIDIUM DIFFICILE COLITIS [None]
  - RENAL FAILURE ACUTE [None]
  - NEUROCRYPTOCOCCOSIS [None]
  - DRUG INEFFECTIVE [None]
